FAERS Safety Report 4964502-1 (Version None)
Quarter: 2006Q1

REPORT INFORMATION
  Report Type: 
  Country: None (occurrence: None)
  Receive Date: 20060331
  Receipt Date: 20060321
  Transmission Date: 20060701
  Serious: Yes (Hospitalization)
  Sender: FDA-Public Use
  Company Number: FR200603005530

PATIENT
  Age: 59 Year
  Sex: Male

DRUGS (5)
  1. GEMZAR [Suspect]
     Indication: LUNG ADENOCARCINOMA
     Dosage: 2.6 G, OTHER, INTRAVENOUS
     Route: 042
     Dates: start: 20060105
  2. CISPLATIN [Concomitant]
  3. SOLU-MEDROL [Concomitant]
  4. NEULASTA [Concomitant]
  5. ZOFRAN [Concomitant]

REACTIONS (4)
  - NEUTROPENIA [None]
  - PURPURA [None]
  - RASH ERYTHEMATOUS [None]
  - THROMBOCYTOPENIA [None]
